FAERS Safety Report 8020998-2 (Version None)
Quarter: 2011Q4

REPORT INFORMATION
  Report Type: 
  Country: None (occurrence: None)
  Receive Date: 20111229
  Receipt Date: 20111229
  Transmission Date: 20120403
  Serious: Yes (Hospitalization)
  Sender: FDA-Public Use
  Company Number: None

PATIENT
  Age: 70 Year
  Sex: Male
  Weight: 66.4 kg

DRUGS (5)
  1. EFFIENT [Suspect]
     Indication: CORONARY ARTERY DISEASE
     Dosage: 10MG DAILY PO CHRONIC
  2. ATENOLOL [Concomitant]
  3. LIPITOR [Concomitant]
  4. ASPIRIN [Suspect]
     Indication: CORONARY ARTERY DISEASE
     Dosage: 325 MG DAILY PO CHRONIC W/RECENT INCREASE
     Route: 048
  5. ISOSORBIDE MONONITRATE [Concomitant]

REACTIONS (2)
  - UPPER GASTROINTESTINAL HAEMORRHAGE [None]
  - MICROCYTIC ANAEMIA [None]
